FAERS Safety Report 5193909-5 (Version None)
Quarter: 2006Q4

REPORT INFORMATION
  Report Type: 
  Country: None (occurrence: None)
  Receive Date: 20061222
  Receipt Date: 20061212
  Transmission Date: 20070319
  Serious: Yes (Hospitalization)
  Sender: FDA-Public Use
  Company Number: 150900USA

PATIENT
  Age: 72 Year
  Sex: Female

DRUGS (18)
  1. FLUOROURACIL [Suspect]
     Indication: COLORECTAL CANCER METASTATIC
     Dosage: 3600 MILLIGRAM 1/14 DAY, INTRAVENOUS (NOT OTHERWISE SPECIFIED)
  2. FOLINIC ACID [Suspect]
     Indication: COLORECTAL CANCER METASTATIC
     Dosage: 600 MILLIGRAM 1/14 DAY, INTRAVENOUS (NOT OTHERWISE SPECIFIED)
     Dates: start: 20060807, end: 20061106
  3. OXALIPLATIN [Suspect]
     Indication: COLORECTAL CANCER METASTATIC
     Dosage: 128 MILLIGRAM 1/14 DAY, INTRAVENOUS (NOT OTHERWISE SPECIFIED)
     Dates: start: 20060807, end: 20061106
  4. BEVACIZUMAB [Suspect]
     Indication: COLORECTAL CANCER METASTATIC
     Dosage: 230 MILLIGRAM 1/14 DAY, INTRAVENOUS (NOT OTHERWISE SPECIFIFED)
     Dates: start: 20060807, end: 20061106
  5. HYDROXYZINE HYDROCHLORIDE [Concomitant]
  6. SUCRALFATE [Concomitant]
  7. SERTRALINE [Concomitant]
  8. LEVOTHYROXINE SODIUM [Concomitant]
  9. METOPROLOL TARTRATE [Concomitant]
  10. METOCLOPRAMIDE [Concomitant]
  11. LORAZEPAM [Concomitant]
  12. OXYCODONE HCL [Concomitant]
  13. POTASSIUM ACETATE [Concomitant]
  14. VITAMIN CAP [Concomitant]
  15. CYANOCOBALAMIN-TANNIN COMPLEX [Concomitant]
  16. CALCIUM [Concomitant]
  17. GLYCOPYRRONIUM BROMIDE [Concomitant]
  18. MORPHINE SULFATE [Concomitant]

REACTIONS (7)
  - ANAEMIA [None]
  - CLOSTRIDIUM DIFFICILE COLITIS [None]
  - DEHYDRATION [None]
  - HYPOMAGNESAEMIA [None]
  - METASTASES TO LIVER [None]
  - ORTHOSTATIC HYPOTENSION [None]
  - PNEUMATOSIS INTESTINALIS [None]
